FAERS Safety Report 10284700 (Version 1)
Quarter: 2014Q3

REPORT INFORMATION
  Report Type: Spontaneous
  Country: GB (occurrence: GB)
  Receive Date: 20140708
  Receipt Date: 20140708
  Transmission Date: 20150326
  Serious: Yes (Other)
  Sender: FDA-Public Use
  Company Number: GB-SA-2014SA089669

PATIENT
  Age: 80 Year
  Sex: Male

DRUGS (2)
  1. FLUDARABINE PHOSPHATE. [Suspect]
     Active Substance: FLUDARABINE PHOSPHATE
     Indication: CHRONIC LYMPHOCYTIC LEUKAEMIA
     Dosage: 4 THERAPY
     Route: 065
     Dates: start: 2009
  2. CYCLOPHOSPHAMIDE. [Suspect]
     Active Substance: CYCLOPHOSPHAMIDE
     Indication: CHRONIC LYMPHOCYTIC LEUKAEMIA
     Dosage: 4 THERAPY
     Route: 065
     Dates: start: 2009

REACTIONS (10)
  - Histiocytosis haematophagic [Recovering/Resolving]
  - Neutropenic sepsis [Recovering/Resolving]
  - Pancytopenia [Recovering/Resolving]
  - Platelet count decreased [Recovering/Resolving]
  - Haemoglobin decreased [Recovering/Resolving]
  - Cytomegalovirus infection [Recovering/Resolving]
  - Pyrexia [Recovering/Resolving]
  - Serum ferritin increased [Recovering/Resolving]
  - Blood triglycerides increased [Recovering/Resolving]
  - Blood fibrinogen decreased [Recovering/Resolving]
